FAERS Safety Report 6765602-6 (Version None)
Quarter: 2010Q2

REPORT INFORMATION
  Report Type: 
  Country: None (occurrence: None)
  Receive Date: 20100611
  Receipt Date: 20100602
  Transmission Date: 20101027
  Serious: Yes (Hospitalization)
  Sender: FDA-Public Use
  Company Number: IE-PFIZER INC-2010066678

PATIENT
  Age: 60 Year
  Sex: Male

DRUGS (1)
  1. VIAGRA [Suspect]
     Indication: PRIAPISM
     Dosage: 50 MG, 1X/DAY

REACTIONS (3)
  - LIVER FUNCTION TEST ABNORMAL [None]
  - MALAISE [None]
  - PRIAPISM [None]
